FAERS Safety Report 23367393 (Version 2)
Quarter: 2024Q4

REPORT INFORMATION
  Report Type: Spontaneous
  Country: JP (occurrence: JP)
  Receive Date: 20240104
  Receipt Date: 20241104
  Transmission Date: 20250115
  Serious: Yes (Death, Other)
  Sender: TAIHO ONCOLOGY INC
  Company Number: JP-BRISTOL-MYERS SQUIBB COMPANY-2024-000088

PATIENT
  Age: 80 Year
  Sex: Male
  Weight: 50.8 kg

DRUGS (3)
  1. TIPIRACIL HYDROCHLORIDE\TRIFLURIDINE [Suspect]
     Active Substance: TIPIRACIL HYDROCHLORIDE\TRIFLURIDINE
     Indication: Gastric cancer
     Dosage: START DATE: 09-JUN-2023
     Route: 048
     Dates: end: 20230717
  2. PACLITAXEL [Suspect]
     Active Substance: PACLITAXEL
     Indication: Gastric cancer
     Route: 050
     Dates: start: 20230307, end: 20230516
  3. IRINOTECAN [Suspect]
     Active Substance: IRINOTECAN
     Indication: Gastric cancer
     Dosage: START DATE: 16-AUG-2023
     Route: 050
     Dates: end: 20230926

REACTIONS (6)
  - Malignant neoplasm progression [Fatal]
  - Drug ineffective [Unknown]
  - Diarrhoea [Recovered/Resolved]
  - Nausea [Recovered/Resolved]
  - Anaemia [Recovering/Resolving]
  - Urticaria [Recovering/Resolving]

NARRATIVE: CASE EVENT DATE: 20230310
